FAERS Safety Report 5267504-3 (Version None)
Quarter: 2007Q1

REPORT INFORMATION
  Report Type: 
  Country: None (occurrence: None)
  Receive Date: 20061213
  Receipt Date: 20040407
  Transmission Date: 20070707
  Serious: No
  Sender: FDA-Public Use
  Company Number: 2004UW04862

PATIENT
  Age: 71 Year
  Sex: Female
  Weight: 88.4514 kg

DRUGS (1)
  1. NOLVADEX [Suspect]
     Dosage: 10 MG PO
     Route: 048
     Dates: start: 20010101, end: 20040315

REACTIONS (4)
  - CATARACT [None]
  - EYE PAIN [None]
  - VITREOUS FLOATERS [None]
  - WEIGHT INCREASED [None]
